FAERS Safety Report 5786163-4 (Version None)
Quarter: 2008Q2

REPORT INFORMATION
  Report Type: 
  Country: None (occurrence: None)
  Receive Date: 20080624
  Receipt Date: 20080620
  Transmission Date: 20081010
  Serious: Yes (Death)
  Sender: FDA-Public Use
  Company Number: A0734577A

PATIENT
  Age: 69 Year
  Sex: Female
  Weight: 47 kg

DRUGS (3)
  1. SERETIDE [Suspect]
     Indication: ASTHMA
     Route: 055
     Dates: start: 20070101, end: 20080403
  2. AMPICILLIN [Concomitant]
     Route: 065
     Dates: start: 20071001, end: 20080403
  3. AMBROXOL [Concomitant]
     Route: 065
     Dates: start: 20080101, end: 20080403

REACTIONS (2)
  - DEATH [None]
  - OEDEMA PERIPHERAL [None]
